FAERS Safety Report 6906108-0 (Version None)
Quarter: 2010Q3

REPORT INFORMATION
  Report Type: 
  Country: None (occurrence: None)
  Receive Date: 20100802
  Receipt Date: 20100721
  Transmission Date: 20110219
  Serious: Yes (Death, Hospitalization)
  Sender: FDA-Public Use
  Company Number: 7011976

PATIENT
  Sex: Female

DRUGS (4)
  1. REBIF [Suspect]
     Indication: PRODUCT USED FOR UNKNOWN INDICATION
     Dosage: 44 MCG, 3 IN 1 WK, SUBCUTANEOUS
     Route: 058
     Dates: end: 20100624
  2. CARBAMAZEPINE [Concomitant]
  3. HYDROCHLOROTHIAZIDE [Concomitant]
  4. PREDNISONE [Concomitant]

REACTIONS (3)
  - CARDIO-RESPIRATORY ARREST [None]
  - LUNG DISORDER [None]
  - MULTIPLE SCLEROSIS RELAPSE [None]
